FAERS Safety Report 8327967-3 (Version None)
Quarter: 2012Q2

REPORT INFORMATION
  Report Type: 
  Country: None (occurrence: None)
  Receive Date: 20120430
  Receipt Date: 20120418
  Transmission Date: 20120825
  Serious: Yes (Other)
  Sender: FDA-Public Use
  Company Number: FR-2012-0129

PATIENT
  Sex: Female

DRUGS (2)
  1. NAVELBINE [Suspect]
     Indication: BREAST CANCER METASTATIC
     Dosage: 25 MG/M2 IV
     Route: 042
  2. LAPATINIB [Suspect]
     Dosage: 1000 MG PO
     Route: 048

REACTIONS (6)
  - NEUTROPENIA [None]
  - CONFUSIONAL STATE [None]
  - MULTI-ORGAN FAILURE [None]
  - DIARRHOEA [None]
  - PANCREATITIS [None]
  - DRUG INTERACTION [None]
